FAERS Safety Report 4696307-3 (Version None)
Quarter: 2005Q2

REPORT INFORMATION
  Report Type: 
  Country: None (occurrence: None)
  Receive Date: 20050620
  Receipt Date: 20050606
  Transmission Date: 20051028
  Serious: Yes (Other)
  Sender: FDA-Public Use
  Company Number: 2005086330

PATIENT
  Age: 83 Year
  Sex: Male

DRUGS (11)
  1. DETROL LA [Suspect]
     Indication: ILL-DEFINED DISORDER
  2. ZOLOFT [Suspect]
     Indication: ILL-DEFINED DISORDER
  3. GLIBOMET (GLIBENCLAMIDE, METFORMIN HYDROCHLORIDE) [Concomitant]
  4. METOPROLOL SUCCINATE [Concomitant]
  5. ROSIGLITAZONE MALEATE [Concomitant]
  6. ALLOPURINOL [Concomitant]
  7. HYDROCHLOROTHIAZIDE [Concomitant]
  8. LISINOPRIL [Concomitant]
  9. NITROFURANTOIN [Concomitant]
  10. SIMVASTATIN [Concomitant]
  11. ACETYLSALICYLIC ACID SRT [Concomitant]

REACTIONS (2)
  - CARDIAC PACEMAKER INSERTION [None]
  - KNEE ARTHROPLASTY [None]
